FAERS Safety Report 5224299-7 (Version None)
Quarter: 2007Q1

REPORT INFORMATION
  Report Type: 
  Country: None (occurrence: None)
  Receive Date: 20070130
  Receipt Date: 20070123
  Transmission Date: 20070707
  Serious: Yes (Hospitalization)
  Sender: FDA-Public Use
  Company Number: FI-ELI_LILLY_AND_COMPANY-FI200612003286

PATIENT
  Age: 46 Year
  Sex: Female

DRUGS (4)
  1. GEMZAR [Suspect]
     Indication: OVARIAN CANCER
     Dosage: ON D 1 AND D 8
     Route: 042
     Dates: start: 20060913
  2. DUROGESIC                               /DEN/ [Concomitant]
     Indication: PAIN
     Dosage: 25 UG, UNKNOWN
     Route: 061
     Dates: start: 20060902
  3. MAREVAN ^BRITISH DRUG HOUSES^ [Concomitant]
     Indication: PULMONARY EMBOLISM
     Dosage: UNK, UNK
     Route: 048
     Dates: start: 20050701
  4. CARBOPLATIN [Concomitant]
     Indication: OVARIAN CANCER
     Dosage: AUC 4 (PA 2 M2)
     Dates: start: 20060913

REACTIONS (3)
  - PLATELET COUNT DECREASED [None]
  - PYREXIA [None]
  - URTICARIA [None]
